FAERS Safety Report 7900844-5 (Version None)
Quarter: 2011Q4

REPORT INFORMATION
  Report Type: 
  Country: None (occurrence: None)
  Receive Date: 20111108
  Receipt Date: 20111108
  Transmission Date: 20120403
  Serious: No
  Sender: FDA-Public Use
  Company Number: None

PATIENT
  Age: 46 Year
  Sex: Male
  Weight: 88.45 kg

DRUGS (1)
  1. PILOCARPINE HYDROCHLORIDE [Suspect]
     Indication: CATARACT
     Dosage: 15M;
     Route: 047
     Dates: start: 20060301, end: 20111107

REACTIONS (1)
  - DRUG INEFFECTIVE [None]
